FAERS Safety Report 10201304 (Version 2)
Quarter: 2014Q2

REPORT INFORMATION
  Report Type: Spontaneous
  Country: JP (occurrence: JP)
  Receive Date: 20140528
  Receipt Date: 20140606
  Transmission Date: 20141212
  Serious: Yes (Life-Threatening, Hospitalization, Other)
  Sender: FDA-Public Use
  Company Number: JP-PFIZER INC-2014142525

PATIENT
  Age: 89 Year
  Sex: Female

DRUGS (3)
  1. LYRICA [Suspect]
     Indication: HYPOAESTHESIA
     Dosage: 25 MG, DAILY
     Route: 048
     Dates: start: 20140405, end: 20140411
  2. ADALAT CR [Concomitant]
     Dosage: 40 MG, 1X/DAY
     Route: 048
     Dates: start: 2011
  3. LAC B N [Concomitant]
     Dosage: 3 G, 3X/DAY (AFTER MEALS)
     Route: 048
     Dates: start: 2009

REACTIONS (4)
  - Drug-induced liver injury [Recovering/Resolving]
  - Vomiting [Recovering/Resolving]
  - Haematemesis [Recovering/Resolving]
  - Ileus [Recovering/Resolving]
